FAERS Safety Report 4674270-9 (Version None)
Quarter: 2005Q2

REPORT INFORMATION
  Report Type: 
  Country: None (occurrence: None)
  Receive Date: 20050524
  Receipt Date: 20050506
  Transmission Date: 20051028
  Serious: No
  Sender: FDA-Public Use
  Company Number: USA050597569

PATIENT
  Age: 24 Year
  Sex: Male
  Weight: 63 kg

DRUGS (5)
  1. STRATTERA [Suspect]
     Indication: ATTENTION DEFICIT/HYPERACTIVITY DISORDER
     Dates: start: 20041201
  2. LAMICTAL [Concomitant]
  3. LIPITOR [Concomitant]
  4. EFFEXOR [Concomitant]
  5. ADOXA (DOXYCYCLINE) [Concomitant]

REACTIONS (1)
  - HEPATIC ENZYME ABNORMAL [None]
